FAERS Safety Report 11039770 (Version 13)
Quarter: 2016Q2

REPORT INFORMATION
  Report Type: Report from Study
  Country: CA (occurrence: CA)
  Receive Date: 20150416
  Receipt Date: 20160630
  Transmission Date: 20160815
  Serious: Yes (Other)
  Sender: FDA-Public Use
  Company Number: PHHY2013CA065511

PATIENT
  Age: 70 Year
  Sex: Male

DRUGS (6)
  1. RHUBARB. [Concomitant]
     Active Substance: RHUBARB
     Indication: PRODUCT USED FOR UNKNOWN INDICATION
     Route: 065
  2. IRON [Concomitant]
     Active Substance: IRON
     Indication: PRODUCT USED FOR UNKNOWN INDICATION
     Route: 048
  3. METFORMIN [Concomitant]
     Active Substance: METFORMIN HYDROCHLORIDE
     Indication: TYPE 2 DIABETES MELLITUS
     Dosage: 1000 MG, UNK
     Route: 065
     Dates: end: 201411
  4. SANDOSTATIN LAR DEPOT [Suspect]
     Active Substance: OCTREOTIDE ACETATE
     Indication: NEUROENDOCRINE TUMOUR
     Dosage: 30 MG, QMO EVERY 4 WEEKS
     Route: 030
     Dates: start: 20130617
  5. SANDOSTATIN [Suspect]
     Active Substance: OCTREOTIDE ACETATE
     Indication: NEUROENDOCRINE TUMOUR
     Dosage: 50 UG, TEST DOSE
     Route: 058
     Dates: start: 20130529, end: 20130529
  6. COTAZYM [Concomitant]
     Active Substance: PANCRELIPASE
     Indication: PRODUCT USED FOR UNKNOWN INDICATION
     Dosage: 2 DF, BEFORE MEALS
     Route: 065

REACTIONS (41)
  - Body temperature decreased [Not Recovered/Not Resolved]
  - Pallor [Unknown]
  - Abdominal pain [Recovering/Resolving]
  - Malignant neoplasm progression [Unknown]
  - Productive cough [Unknown]
  - Rales [Unknown]
  - Chills [Recovered/Resolved]
  - Confusional state [Unknown]
  - Gait disturbance [Unknown]
  - Neoplasm [Unknown]
  - Stress [Unknown]
  - Herpes zoster [Unknown]
  - Obstructive airways disorder [Unknown]
  - Blood pressure systolic increased [Unknown]
  - Haemoglobin decreased [Unknown]
  - Blood glucose increased [Unknown]
  - Back pain [Unknown]
  - Blood creatinine increased [Recovering/Resolving]
  - Injection site mass [Unknown]
  - Abdominal pain upper [Unknown]
  - Pruritus [Recovered/Resolved]
  - Faeces discoloured [Unknown]
  - Blood glucose decreased [Recovering/Resolving]
  - Asthenia [Unknown]
  - Chest pain [Recovering/Resolving]
  - Muscle spasms [Recovered/Resolved]
  - Inner ear disorder [Unknown]
  - Needle issue [Unknown]
  - Faeces soft [Unknown]
  - Dizziness [Unknown]
  - Energy increased [Unknown]
  - Abdominal rigidity [Unknown]
  - Steatorrhoea [Unknown]
  - Abdominal pain [Recovered/Resolved]
  - Respiratory tract infection [Unknown]
  - Blood pressure increased [Unknown]
  - Nasopharyngitis [Unknown]
  - Feeling abnormal [Unknown]
  - Abnormal faeces [Unknown]
  - Skin injury [Recovering/Resolving]
  - Nausea [Unknown]

NARRATIVE: CASE EVENT DATE: 20130617
